FAERS Safety Report 18927223 (Version 2)
Quarter: 2021Q1

REPORT INFORMATION
  Report Type: Spontaneous
  Country: US (occurrence: US)
  Receive Date: 20210223
  Receipt Date: 20210303
  Transmission Date: 20210420
  Serious: Yes (Other)
  Sender: FDA-Public Use
  Company Number: US-GLAXOSMITHKLINE-US2021GSK050123

PATIENT
  Sex: Male

DRUGS (6)
  1. ZANTAC [Suspect]
     Active Substance: RANITIDINE HYDROCHLORIDE
     Indication: PEPTIC ULCER
     Dosage: 150 MG, QD
     Route: 065
     Dates: start: 198807, end: 202002
  2. RANITIDINE CAPSULE [Suspect]
     Active Substance: RANITIDINE
     Indication: PEPTIC ULCER
     Dosage: 150 MG, QD
     Route: 065
     Dates: start: 198807, end: 202002
  3. ZANTAC [Suspect]
     Active Substance: RANITIDINE HYDROCHLORIDE
     Indication: PEPTIC ULCER
     Dosage: 150 MG, QD
     Route: 065
     Dates: start: 198807, end: 202002
  4. RANITIDINE. [Suspect]
     Active Substance: RANITIDINE
     Indication: PEPTIC ULCER
     Dosage: 150 MG, QD
     Route: 065
     Dates: start: 199702, end: 202003
  5. RANITIDINE. [Suspect]
     Active Substance: RANITIDINE
     Indication: PEPTIC ULCER
     Dosage: 150 MG, QD
     Route: 065
     Dates: start: 199702, end: 202003
  6. ZANTAC [Suspect]
     Active Substance: RANITIDINE HYDROCHLORIDE
     Indication: PEPTIC ULCER
     Dosage: 150 MG, QD
     Route: 065
     Dates: start: 198807, end: 202002

REACTIONS (2)
  - Prostate cancer [Unknown]
  - Skin cancer [Unknown]
